FAERS Safety Report 6804810-2 (Version None)
Quarter: 2010Q2

REPORT INFORMATION
  Report Type: 
  Country: None (occurrence: None)
  Receive Date: 20100628
  Receipt Date: 20070618
  Transmission Date: 20101027
  Serious: No
  Sender: FDA-Public Use
  Company Number: US-PFIZER INC-2007049166

PATIENT
  Sex: Female
  Weight: 105 kg

DRUGS (13)
  1. RELPAX [Suspect]
     Indication: MIGRAINE
     Dates: start: 20070501
  2. ATENOLOL [Concomitant]
     Indication: HYPERTENSION
  3. PREVACID [Concomitant]
  4. METFORMIN HCL [Concomitant]
  5. SITAGLIPTIN [Concomitant]
  6. LEXAPRO [Concomitant]
  7. XANAX [Concomitant]
  8. AMITRIPTYLINE [Concomitant]
  9. ATACAND [Concomitant]
     Indication: HYPERTENSION
  10. LEVOTHYROXINE SODIUM [Concomitant]
  11. VISTARIL [Concomitant]
     Indication: ANXIETY
  12. FISH OIL [Concomitant]
     Indication: DRY EYE
  13. ALEVE (CAPLET) [Concomitant]
     Indication: ARTHRITIS

REACTIONS (2)
  - MIGRAINE [None]
  - WEIGHT DECREASED [None]
